FAERS Safety Report 5931259-7 (Version None)
Quarter: 2008Q4

REPORT INFORMATION
  Report Type: 
  Country: None (occurrence: None)
  Receive Date: 20081027
  Receipt Date: 20080819
  Transmission Date: 20090506
  Serious: No
  Sender: FDA-Public Use
  Company Number: US-BAYER-200832212NA

PATIENT
  Age: 53 Year
  Sex: Female
  Weight: 75 kg

DRUGS (1)
  1. MAGNEVIST [Suspect]
     Indication: NUCLEAR MAGNETIC RESONANCE IMAGING ABDOMINAL
     Route: 042
     Dates: start: 20080819, end: 20080819

REACTIONS (3)
  - PRURITUS [None]
  - SNEEZING [None]
  - URTICARIA [None]
